FAERS Safety Report 6574669-X (Version None)
Quarter: 2010Q1

REPORT INFORMATION
  Report Type: 
  Country: None (occurrence: None)
  Receive Date: 20100201
  Receipt Date: 20100118
  Transmission Date: 20100710
  Serious: Yes (Hospitalization)
  Sender: FDA-Public Use
  Company Number: 1000011406

PATIENT
  Age: 84 Year
  Sex: Female
  Weight: 59 kg

DRUGS (8)
  1. MEMANTINE HCL [Suspect]
     Indication: DEMENTIA ALZHEIMER'S TYPE
     Dosage: 20 MG (20 MG, ONCE DAILY AFTER BREAKFAST) ORAL; 20 MG (20 MG, ONCE DAILY AFTER BREAKFAST) ORAL
     Route: 048
     Dates: start: 20080824
  2. MEMANTINE HCL [Suspect]
     Indication: DEMENTIA ALZHEIMER'S TYPE
     Dosage: 20 MG (20 MG, ONCE DAILY AFTER BREAKFAST) ORAL; 20 MG (20 MG, ONCE DAILY AFTER BREAKFAST) ORAL
     Route: 048
     Dates: start: 20100112
  3. AMLODIPINE BESYLATE [Concomitant]
  4. MAGNESIUM OXIDE [Concomitant]
  5. YOKU-KAN-SAN [Concomitant]
  6. TIAPRIDE HYDROCHLORIDE [Concomitant]
  7. IRBESARTAN [Concomitant]
  8. ROSUVASTATIN CALCIUM [Concomitant]

REACTIONS (1)
  - CHOLECYSTITIS ACUTE [None]
